FAERS Safety Report 4876699-2 (Version None)
Quarter: 2005Q4

REPORT INFORMATION
  Report Type: 
  Country: None (occurrence: None)
  Receive Date: 20051206
  Receipt Date: 20050809
  Transmission Date: 20060501
  Serious: No
  Sender: FDA-Public Use
  Company Number: USA041183821

PATIENT
  Age: 52 Year
  Sex: Male

DRUGS (9)
  1. ZYPREXA [Suspect]
     Indication: BIPOLAR I DISORDER
     Dosage: 5 MG AT BEDTIME
     Dates: start: 20041101
  2. CYMBALTA [Suspect]
     Indication: BIPOLAR I DISORDER
     Dosage: 60 MG DAY
     Dates: start: 20050601
  3. LITHIUM [Concomitant]
  4. CELEXA [Concomitant]
  5. KLONOPIN [Concomitant]
  6. REMERON (MIRTAZAPINE ORIFARM) [Concomitant]
  7. PRILOSEC [Concomitant]
  8. GEODON [Concomitant]
  9. LAMICTAL [Concomitant]

REACTIONS (9)
  - ARTHRALGIA [None]
  - BACK PAIN [None]
  - DEPRESSION [None]
  - DIFFICULTY IN WALKING [None]
  - DRUG INEFFECTIVE [None]
  - MYALGIA [None]
  - PAIN [None]
  - PAIN IN EXTREMITY [None]
  - SOMNOLENCE [None]
